FAERS Safety Report 10333977 (Version 2)
Quarter: 2014Q3

REPORT INFORMATION
  Report Type: Spontaneous
  Country: US (occurrence: US)
  Receive Date: 20140723
  Receipt Date: 20140723
  Transmission Date: 20150326
  Serious: No
  Sender: FDA-Public Use
  Company Number: US-UNITED THERAPEUTICS-UTC-048210

PATIENT
  Age: 76 Year
  Sex: Female
  Weight: 76.65 kg

DRUGS (1)
  1. TYVASO [Suspect]
     Active Substance: TREPROSTINIL
     Dosage: 18-54 MICROGRAMS, QID
     Dates: start: 20140424

REACTIONS (9)
  - Throat irritation [Recovered/Resolved]
  - Gait disturbance [Unknown]
  - Blood count abnormal [Unknown]
  - Weight fluctuation [Unknown]
  - Fatigue [Unknown]
  - Heart rate decreased [Unknown]
  - Chest pain [Unknown]
  - Dizziness [Unknown]
  - Oxygen saturation decreased [Unknown]

NARRATIVE: CASE EVENT DATE: 20140424
